FAERS Safety Report 13656300 (Version 1)
Quarter: 2017Q2

REPORT INFORMATION
  Report Type: Spontaneous
  Country: JP (occurrence: JP)
  Receive Date: 20170615
  Receipt Date: 20170615
  Transmission Date: 20170830
  Serious: Yes (Other)
  Sender: FDA-Public Use
  Company Number: PHJP2017JP018726

PATIENT
  Age: 5 Year
  Sex: Male

DRUGS (2)
  1. ILARIS [Suspect]
     Active Substance: CANAKINUMAB
     Dosage: 150 MG, BIW (2W)
     Route: 058
     Dates: start: 201705
  2. ILARIS [Suspect]
     Active Substance: CANAKINUMAB
     Indication: TUMOUR NECROSIS FACTOR RECEPTOR-ASSOCIATED PERIODIC SYNDROME
     Dosage: 150 MG, QMO (4W)
     Route: 058
     Dates: start: 201705

REACTIONS (4)
  - Product use issue [Recovering/Resolving]
  - Pleurisy [Unknown]
  - Drug effect incomplete [Unknown]
  - Peritonitis [Unknown]

NARRATIVE: CASE EVENT DATE: 201705
